FAERS Safety Report 9891427 (Version 1)
Quarter: 2014Q1

REPORT INFORMATION
  Report Type: Spontaneous
  Country: KR (occurrence: None)
  Receive Date: 20140207
  Receipt Date: 20140207
  Transmission Date: 20141002
  Serious: Yes (Other)
  Sender: FDA-Public Use
  Company Number: 2014P1000765

PATIENT
  Age: 33 Year
  Sex: Female

DRUGS (4)
  1. ETHAMBUTOL [Suspect]
     Indication: SPLEEN TUBERCULOSIS
  2. ISONIAZID [Suspect]
     Indication: SPLEEN TUBERCULOSIS
  3. RIFAMPICIN [Suspect]
     Indication: SPLEEN TUBERCULOSIS
  4. PYRAZINAMIDE [Suspect]
     Indication: SPLEEN TUBERCULOSIS

REACTIONS (8)
  - Splenic abscess [None]
  - Condition aggravated [None]
  - Splenic rupture [None]
  - Splenic necrosis [None]
  - Spleen disorder [None]
  - Splenic haemorrhage [None]
  - Splenic granuloma [None]
  - Paradoxical drug reaction [None]
